FAERS Safety Report 6410216-0 (Version None)
Quarter: 2009Q4

REPORT INFORMATION
  Report Type: 
  Country: None (occurrence: None)
  Receive Date: 20091022
  Receipt Date: 20091009
  Transmission Date: 20100525
  Serious: Yes (Hospitalization)
  Sender: FDA-Public Use
  Company Number: PHHY2009JP44023

PATIENT

DRUGS (2)
  1. EXJADE [Suspect]
     Indication: IRON OVERLOAD
     Dosage: UNK
     Route: 048
     Dates: start: 20090901
  2. EXJADE [Suspect]
     Dosage: UNK
     Route: 048

REACTIONS (4)
  - ENANTHEMA [None]
  - HYPOXIA [None]
  - PYREXIA [None]
  - STEVENS-JOHNSON SYNDROME [None]
